FAERS Safety Report 7592867-3 (Version None)
Quarter: 2011Q3

REPORT INFORMATION
  Report Type: 
  Country: None (occurrence: None)
  Receive Date: 20110706
  Receipt Date: 20110624
  Transmission Date: 20111222
  Serious: Yes (Other)
  Sender: FDA-Public Use
  Company Number: US-ENDO PHARMACEUTICALS INC.-VALS20110048

PATIENT
  Sex: Female
  Weight: 84.444 kg

DRUGS (1)
  1. VALSTAR PRESERVATIVE FREE [Suspect]
     Indication: BLADDER CANCER
     Route: 043

REACTIONS (1)
  - RENAL CANCER [None]
